FAERS Safety Report 23352311 (Version 2)
Quarter: 2024Q1

REPORT INFORMATION
  Report Type: Spontaneous
  Country: CZ (occurrence: CZ)
  Receive Date: 20231229
  Receipt Date: 20240122
  Transmission Date: 20240410
  Serious: Yes (Other)
  Sender: FDA-Public Use
  Company Number: CZ-002147023-NVSC2023CZ257359

PATIENT
  Age: 54 Year
  Sex: Male

DRUGS (3)
  1. IMATINIB [Suspect]
     Active Substance: IMATINIB
     Indication: Chronic myeloid leukaemia
     Dosage: 400 MILLIGRAM, QD
     Route: 065
     Dates: start: 201912
  2. IMATINIB [Suspect]
     Active Substance: IMATINIB
     Dosage: 400 MILLIGRAM, QD, (REDUCED DOSE)
     Route: 065
     Dates: start: 201912, end: 202103
  3. NILOTINIB [Concomitant]
     Active Substance: NILOTINIB
     Indication: Chronic myeloid leukaemia
     Dosage: 300 MILLIGRAM, BID (2X DAILY)
     Route: 065
     Dates: end: 201912

REACTIONS (3)
  - Fatigue [Unknown]
  - Arthralgia [Unknown]
  - Drug intolerance [Unknown]
